FAERS Safety Report 10154745 (Version 2)
Quarter: 2014Q2

REPORT INFORMATION
  Report Type: Spontaneous
  Country: US (occurrence: None)
  Receive Date: 20140502
  Receipt Date: 20140530
  Transmission Date: 20141212
  Serious: Yes (Other)
  Sender: FDA-Public Use
  Company Number: 2014-19398

PATIENT
  Age: 67 Year
  Sex: Female
  Weight: 81.6 kg

DRUGS (5)
  1. ARCALYST [Suspect]
     Indication: FAMILIAL COLD AUTOINFLAMMATORY SYNDROME
     Route: 058
     Dates: start: 2005, end: 20140316
  2. METOPROLOL (METOPROLOL) [Concomitant]
  3. PREVACID (LANSOPRAZOLE) [Concomitant]
  4. ARMOUR THYROID) (THYROID) [Concomitant]
  5. CELEBREX (CELECOXIB) [Concomitant]

REACTIONS (4)
  - Diverticulitis [None]
  - Abdominal pain lower [None]
  - Clostridium difficile infection [None]
  - Diarrhoea haemorrhagic [None]
